FAERS Safety Report 14593000 (Version 2)
Quarter: 2018Q2

REPORT INFORMATION
  Report Type: Report from Study
  Country: US (occurrence: US)
  Receive Date: 20180302
  Receipt Date: 20180403
  Transmission Date: 20180711
  Serious: Yes (Other)
  Sender: FDA-Public Use
  Company Number: US-TESARO, INC-US-2018TSO00968

PATIENT

DRUGS (1)
  1. ZEJULA [Suspect]
     Active Substance: NIRAPARIB
     Indication: OVARIAN CANCER
     Dosage: 300 MG, QD
     Route: 048
     Dates: start: 20180215, end: 20180306

REACTIONS (9)
  - Cardiac flutter [Unknown]
  - Pain in jaw [Not Recovered/Not Resolved]
  - Nausea [Not Recovered/Not Resolved]
  - Feeling jittery [Unknown]
  - Insomnia [Unknown]
  - Platelet count decreased [Not Recovered/Not Resolved]
  - Adverse drug reaction [Unknown]
  - Weight decreased [Recovered/Resolved]
  - Blood pressure systolic increased [Recovered/Resolved]
